FAERS Safety Report 24107863 (Version 1)
Quarter: 2024Q3

REPORT INFORMATION
  Report Type: Report from Study
  Country: US (occurrence: None)
  Receive Date: 20240718
  Receipt Date: 20240718
  Transmission Date: 20241017
  Serious: Yes (Other)
  Sender: ASTRAZENECA
  Company Number: 2020SF16423

PATIENT
  Age: 52 Year
  Sex: Female

DRUGS (1)
  1. FASENRA [Suspect]
     Active Substance: BENRALIZUMAB
     Indication: Asthma
     Route: 058
     Dates: start: 20200214

REACTIONS (2)
  - Sinusitis [Unknown]
  - Breast cancer female [Unknown]

NARRATIVE: CASE EVENT DATE: 20200501
